FAERS Safety Report 5819658-5 (Version None)
Quarter: 2008Q3

REPORT INFORMATION
  Report Type: 
  Country: None (occurrence: None)
  Receive Date: 20080723
  Receipt Date: 20080711
  Transmission Date: 20090109
  Serious: Yes (Other)
  Sender: FDA-Public Use
  Company Number: IT-PFIZER INC-2008059100

PATIENT
  Sex: Male
  Weight: 59 kg

DRUGS (4)
  1. MARAVIROC [Suspect]
     Indication: HIV INFECTION
     Route: 048
  2. FOSAMPRENAVIR [Concomitant]
     Route: 048
  3. SUSTIVA [Concomitant]
     Route: 048
  4. ABACAVIR [Concomitant]
     Route: 048

REACTIONS (1)
  - SQUAMOUS CELL CARCINOMA [None]
